FAERS Safety Report 5124931-2 (Version None)
Quarter: 2006Q4

REPORT INFORMATION
  Report Type: 
  Country: None (occurrence: None)
  Receive Date: 20061006
  Receipt Date: 20060922
  Transmission Date: 20070319
  Serious: Yes (Hospitalization)
  Sender: FDA-Public Use
  Company Number: SPVI-2006-00797

PATIENT
  Age: 31 Year
  Sex: Female

DRUGS (3)
  1. PENTASA [Suspect]
     Indication: COLITIS ULCERATIVE
     Dosage: 750 MG, 3X/DAY; TID; ORAL
     Route: 048
     Dates: start: 20050909, end: 20050930
  2. CEFAMEZIN ( CEFAZOLIN SODIUM, LIDOCAINE HYDROCHLORIDE) [Concomitant]
  3. CEFDINIR [Concomitant]

REACTIONS (7)
  - COUGH [None]
  - PERICARDIAL EFFUSION [None]
  - PERICARDITIS [None]
  - PHARYNGOLARYNGEAL PAIN [None]
  - PLEURAL EFFUSION [None]
  - PLEURISY [None]
  - PYREXIA [None]
